FAERS Safety Report 12956344 (Version 3)
Quarter: 2017Q1

REPORT INFORMATION
  Report Type: Spontaneous
  Country: US (occurrence: US)
  Receive Date: 20161118
  Receipt Date: 20170223
  Transmission Date: 20170428
  Serious: Yes (Other)
  Sender: FDA-Public Use
  Company Number: US-JNJFOC-20161119270

PATIENT
  Age: 58 Year
  Sex: Male
  Weight: 90.27 kg

DRUGS (5)
  1. CARVEDILOL. [Concomitant]
     Active Substance: CARVEDILOL
     Indication: HYPERTENSION
     Dosage: DOSE: 10 (UNITS UNSPECIFIED)
     Route: 065
     Dates: start: 2008
  2. INVOKAMET [Suspect]
     Active Substance: CANAGLIFLOZIN\METFORMIN HYDROCHLORIDE
     Indication: DIABETES MELLITUS
     Dosage: DOSE 150/1000 MG
     Route: 048
     Dates: start: 20151105, end: 20161127
  3. BABY ASPIRIN [Concomitant]
     Active Substance: ASPIRIN
     Indication: BLOOD CHOLESTEROL ABNORMAL
     Dosage: 81 (UNITS UNSPECIFIED)
     Route: 065
     Dates: start: 2012
  4. CRESTOR [Concomitant]
     Active Substance: ROSUVASTATIN CALCIUM
     Indication: BLOOD CHOLESTEROL ABNORMAL
     Route: 065
     Dates: start: 2008
  5. TRULICITY [Concomitant]
     Active Substance: DULAGLUTIDE
     Indication: DIABETES MELLITUS
     Dosage: FREQUENCY- 1.5 WEEK; DOSE: 1.5 (UNITS UNSPECIFIED)
     Route: 065
     Dates: start: 20151105

REACTIONS (3)
  - Blood creatinine increased [Not Recovered/Not Resolved]
  - Microalbuminuria [Not Recovered/Not Resolved]
  - Glomerular filtration rate decreased [Not Recovered/Not Resolved]

NARRATIVE: CASE EVENT DATE: 201611
